FAERS Safety Report 23225316 (Version 1)
Quarter: 2023Q4

REPORT INFORMATION
  Report Type: Spontaneous
  Country: IT (occurrence: IT)
  Receive Date: 20231124
  Receipt Date: 20231124
  Transmission Date: 20240109
  Serious: Yes (Disabling, Other)
  Sender: FDA-Public Use
  Company Number: None

PATIENT
  Age: 24 Year
  Sex: Male

DRUGS (1)
  1. FINASTERIDE [Suspect]
     Active Substance: FINASTERIDE
     Indication: Alopecia
     Dosage: DRUG WAS TAKEN 3-6 MONTHS

REACTIONS (11)
  - Male reproductive tract disorder [Unknown]
  - Asthenia [Unknown]
  - Muscle strength abnormal [Unknown]
  - Scrotal operation [Unknown]
  - Semen liquefaction [Unknown]
  - Erectile dysfunction [Unknown]
  - Male orgasmic disorder [Unknown]
  - Loss of libido [Unknown]
  - Emotional disorder [Unknown]
  - Quality of life decreased [Unknown]
  - Apathy [Unknown]
